FAERS Safety Report 14562398 (Version 3)
Quarter: 2018Q1

REPORT INFORMATION
  Report Type: Spontaneous
  Country: US (occurrence: US)
  Receive Date: 20180222
  Receipt Date: 20180329
  Transmission Date: 20180509
  Serious: Yes (Other)
  Sender: FDA-Public Use
  Company Number: US-ROCHE-2075040

PATIENT
  Sex: Female

DRUGS (1)
  1. CATHFLO ACTIVASE [Suspect]
     Active Substance: ALTEPLASE
     Indication: DEVICE RELATED THROMBOSIS
     Dosage: UNKNOWN
     Route: 042

REACTIONS (3)
  - Angioedema [Recovered/Resolved]
  - Product label issue [Unknown]
  - Product quality issue [Unknown]
